FAERS Safety Report 5055437-7 (Version None)
Quarter: 2006Q3

REPORT INFORMATION
  Report Type: 
  Country: None (occurrence: None)
  Receive Date: 20060714
  Receipt Date: 20060628
  Transmission Date: 20061208
  Serious: Yes (Death, Other)
  Sender: FDA-Public Use
  Company Number: 190002L06JPN

PATIENT
  Age: 28 Year
  Sex: Female

DRUGS (2)
  1. MENOTROPHIN (MENOTROPHIN) [Suspect]
     Indication: OVULATION INDUCTION
     Dosage: 150 IU
  2. HUMAN CHORIONIC GONADOTRIPIN (HCG) [Suspect]
     Indication: OVULATION INDUCTION
     Dosage: 5000 IU

REACTIONS (8)
  - ABDOMINAL PAIN LOWER [None]
  - ASCITES [None]
  - OVARIAN CYST [None]
  - OVARIAN HYPERSTIMULATION SYNDROME [None]
  - PLEURAL EFFUSION [None]
  - PULMONARY OEDEMA [None]
  - RESPIRATORY ARREST [None]
  - RESPIRATORY FAILURE [None]
